FAERS Safety Report 4423338-0 (Version None)
Quarter: 2004Q3

REPORT INFORMATION
  Report Type: 
  Country: None (occurrence: None)
  Receive Date: 20040805
  Receipt Date: 20040723
  Transmission Date: 20050211
  Serious: Yes (Other)
  Sender: FDA-Public Use
  Company Number: US-JNJFOC-20040706470

PATIENT
  Age: 52 Year
  Sex: Male

DRUGS (11)
  1. INFLIXIMAB (INFLIXIMAB, RECOMBINANT) LYOPHILIZED POWDER [Suspect]
     Indication: RHEUMATOID ARTHRITIS
     Dosage: 6 VIALS EVERY 8 WEEKS
     Dates: start: 20030602, end: 20031001
  2. SULFASALAZINE [Concomitant]
  3. COLCHICINE [Concomitant]
  4. METHOTREXATE [Concomitant]
  5. FOLIC ACID [Concomitant]
  6. HYDROXYCHLOROQUINE SULFATE [Concomitant]
  7. BEXTRA [Concomitant]
  8. PREDNISONE [Concomitant]
  9. ALLEGRA [Concomitant]
  10. ARAVA [Concomitant]
  11. PROPOXY-N-APAP (PROPACET) [Concomitant]

REACTIONS (2)
  - MYALGIA [None]
  - PARAESTHESIA [None]
